FAERS Safety Report 25912912 (Version 1)
Quarter: 2025Q4

REPORT INFORMATION
  Report Type: Spontaneous
  Country: GB (occurrence: GB)
  Receive Date: 20251013
  Receipt Date: 20251013
  Transmission Date: 20260117
  Serious: Yes (Life-Threatening, Hospitalization)
  Sender: MACLEODS
  Company Number: GB-MLMSERVICE-20250929-PI661027-00246-1

PATIENT

DRUGS (2)
  1. LURASIDONE [Suspect]
     Active Substance: LURASIDONE
     Indication: Schizophrenia
     Route: 065
  2. OLANZAPINE [Suspect]
     Active Substance: OLANZAPINE
     Indication: Schizophrenia
     Route: 065

REACTIONS (4)
  - Myositis [Unknown]
  - Compartment syndrome [Unknown]
  - Peroneal nerve palsy [Unknown]
  - Rhabdomyolysis [Recovered/Resolved]
